FAERS Safety Report 19235385 (Version 1)
Quarter: 2021Q2

REPORT INFORMATION
  Report Type: Spontaneous
  Country: IN (occurrence: IN)
  Receive Date: 20210510
  Receipt Date: 20210510
  Transmission Date: 20210717
  Serious: Yes (Hospitalization, Other)
  Sender: FDA-Public Use
  Company Number: IN-IPCA LABORATORIES LIMITED-IPC-2021-IN-000978

PATIENT

DRUGS (6)
  1. METOCLOPRAMIDE. [Suspect]
     Active Substance: METOCLOPRAMIDE
     Indication: HEADACHE
     Dosage: UNK
     Route: 065
  2. TRAMADOL. [Suspect]
     Active Substance: TRAMADOL
     Indication: INSOMNIA
  3. ONDANSETRON [Suspect]
     Active Substance: ONDANSETRON
     Indication: INSOMNIA
     Dosage: UNK
     Route: 065
  4. ONDANSETRON [Suspect]
     Active Substance: ONDANSETRON
     Indication: HEADACHE
  5. METOCLOPRAMIDE. [Suspect]
     Active Substance: METOCLOPRAMIDE
     Indication: INSOMNIA
  6. TRAMADOL. [Suspect]
     Active Substance: TRAMADOL
     Indication: HEADACHE
     Dosage: UNK
     Route: 065

REACTIONS (4)
  - Serotonin syndrome [Recovered/Resolved]
  - Renal tubular injury [Recovered/Resolved]
  - Loss of consciousness [Recovered/Resolved]
  - Acute kidney injury [Recovered/Resolved]
